FAERS Safety Report 7204461-4 (Version None)
Quarter: 2010Q4

REPORT INFORMATION
  Report Type: 
  Country: None (occurrence: None)
  Receive Date: 20101230
  Receipt Date: 20101224
  Transmission Date: 20110411
  Serious: Yes (Hospitalization)
  Sender: FDA-Public Use
  Company Number: FR-AMGEN-FRASP2010011124

PATIENT

DRUGS (5)
  1. NEULASTA [Suspect]
     Indication: CHEMOTHERAPY
     Dosage: 6 MG, UNK
     Dates: start: 20100704, end: 20100725
  2. EMEND                              /01627301/ [Suspect]
     Dosage: 80 MG, UNK
  3. INNOHEP [Suspect]
     Dosage: 0.6 ML, QD
     Dates: end: 20100824
  4. ALIMTA [Suspect]
     Dosage: 500 MG, UNK
     Dates: start: 20100702, end: 20100723
  5. CARBOPLATIN [Concomitant]
     Dosage: UNK
     Dates: start: 20100702, end: 20100723

REACTIONS (1)
  - RENAL FAILURE ACUTE [None]
